FAERS Safety Report 25166551 (Version 1)
Quarter: 2025Q2

REPORT INFORMATION
  Report Type: Spontaneous
  Country: JP (occurrence: JP)
  Receive Date: 20250407
  Receipt Date: 20250407
  Transmission Date: 20250716
  Serious: Yes (Hospitalization, Other)
  Sender: OXFORD PHARMACEUTICALS
  Company Number: JP-Oxford Pharmaceuticals, LLC-2174406

PATIENT
  Age: 68 Year
  Sex: Female
  Weight: 53 kg

DRUGS (4)
  1. TRAZODONE HYDROCHLORIDE [Suspect]
     Active Substance: TRAZODONE HYDROCHLORIDE
     Indication: Product used for unknown indication
  2. LACOSAMIDE [Suspect]
     Active Substance: LACOSAMIDE
  3. MIRTAZAPINE [Suspect]
     Active Substance: MIRTAZAPINE
  4. ALPRAZOLAM [Suspect]
     Active Substance: ALPRAZOLAM

REACTIONS (12)
  - Respiratory acidosis [Unknown]
  - Electrocardiogram PR prolongation [Unknown]
  - Electrocardiogram QT prolonged [Unknown]
  - Bradycardia [Recovered/Resolved]
  - Hypotension [Unknown]
  - Hypertension [Unknown]
  - Coma [Unknown]
  - Shock [Recovered/Resolved]
  - Intentional overdose [Unknown]
  - Suicide attempt [Unknown]
  - Ventricular extrasystoles [Unknown]
  - Electrocardiogram QRS complex prolonged [Unknown]
